FAERS Safety Report 8393997-9 (Version None)
Quarter: 2012Q2

REPORT INFORMATION
  Report Type: 
  Country: None (occurrence: None)
  Receive Date: 20120530
  Receipt Date: 20120517
  Transmission Date: 20120825
  Serious: Yes (Other)
  Sender: FDA-Public Use
  Company Number: CN-JNJFOC-20120501268

PATIENT
  Sex: Male
  Weight: 60 kg

DRUGS (4)
  1. RISPERIDONE [Suspect]
     Indication: SCHIZOPHRENIA
     Route: 048
     Dates: start: 20110824, end: 20110829
  2. RISPERIDONE [Suspect]
     Indication: BIPOLAR DISORDER
     Route: 048
     Dates: start: 20110824, end: 20110829
  3. RISPERIDONE [Suspect]
     Route: 048
     Dates: start: 20110824, end: 20110915
  4. RISPERIDONE [Suspect]
     Route: 048
     Dates: start: 20110824, end: 20110915

REACTIONS (3)
  - MENTAL DISORDER [None]
  - EXTRAPYRAMIDAL DISORDER [None]
  - SALIVARY HYPERSECRETION [None]
